FAERS Safety Report 15450388 (Version 1)
Quarter: 2018Q3

REPORT INFORMATION
  Report Type: Spontaneous
  Country: US (occurrence: US)
  Receive Date: 20180927
  Receipt Date: 20180927
  Transmission Date: 20181010
  Serious: Yes (Hospitalization)
  Sender: FDA-Public Use
  Company Number: None

PATIENT
  Age: 77 Year
  Sex: Male
  Weight: 73.35 kg

DRUGS (10)
  1. MELPHALAN. [Suspect]
     Active Substance: MELPHALAN
     Indication: AMYLOIDOSIS
     Route: 048
     Dates: start: 20180814
  2. TORSEMIDE. [Concomitant]
     Active Substance: TORSEMIDE
  3. CARBIDOPA/LEVODOPA/ENTACAPONE [Concomitant]
     Active Substance: CARBIDOPA\ENTACAPONE\LEVODOPA
  4. KLOR?CON M20 [Concomitant]
     Active Substance: POTASSIUM CHLORIDE
  5. MIDODRINE [Concomitant]
     Active Substance: MIDODRINE
  6. PRAMIPEXOLE. [Concomitant]
     Active Substance: PRAMIPEXOLE
  7. VITAMIN D [Concomitant]
     Active Substance: CHOLECALCIFEROL
  8. ATORVASTATIN [Concomitant]
     Active Substance: ATORVASTATIN
  9. FERROUS SULFATE. [Concomitant]
     Active Substance: FERROUS SULFATE
  10. MAGNESIUM [Concomitant]
     Active Substance: MAGNESIUM

REACTIONS (3)
  - Disease complication [None]
  - Oedema peripheral [None]
  - Rash [None]

NARRATIVE: CASE EVENT DATE: 20180909
